FAERS Safety Report 9139421 (Version 1)
Quarter: 2013Q1

REPORT INFORMATION
  Report Type: Spontaneous
  Country: US (occurrence: None)
  Receive Date: 20130205
  Receipt Date: 20130205
  Transmission Date: 20140127
  Serious: Yes (Death)
  Sender: FDA-Public Use
  Company Number: IMP_06190_2013

PATIENT
  Age: 53 Year
  Sex: Female

DRUGS (5)
  1. BUPROPION [Suspect]
     Route: 048
  2. AMITRIPTYLINE [Suspect]
     Route: 048
  3. METFORMIN [Suspect]
     Route: 048
  4. METHADONE [Suspect]
     Route: 048
  5. CLONAZEPAM [Suspect]
     Route: 048

REACTIONS (4)
  - Poisoning [None]
  - Cardiac arrest [None]
  - Respiratory arrest [None]
  - Completed suicide [None]
